FAERS Safety Report 9948557 (Version 1)
Quarter: 2014Q1

REPORT INFORMATION
  Report Type: Report from Study
  Country: US (occurrence: US)
  Receive Date: 20140303
  Receipt Date: 20140303
  Transmission Date: 20141002
  Serious: No
  Sender: FDA-Public Use
  Company Number: US-ABBVIE-13P-163-1061674-00

PATIENT
  Age: 30 Year
  Sex: Male

DRUGS (4)
  1. HUMIRA [Suspect]
     Indication: CROHN^S DISEASE
     Dates: start: 20130201
  2. HUMIRA [Suspect]
     Dates: start: 20130215
  3. HUMIRA [Suspect]
     Dates: start: 20130301
  4. IRON [Concomitant]
     Indication: BLOOD IRON DECREASED
     Dosage: 200MG DAILY

REACTIONS (1)
  - Headache [Recovered/Resolved]
